FAERS Safety Report 5811215-X (Version None)
Quarter: 2008Q3

REPORT INFORMATION
  Report Type: 
  Country: None (occurrence: None)
  Receive Date: 20080710
  Receipt Date: 20080702
  Transmission Date: 20090109
  Serious: Yes (Other)
  Sender: FDA-Public Use
  Company Number: 100#03#2008-03456

PATIENT
  Age: 74 Year
  Sex: Male

DRUGS (1)
  1. SINERSUL (SULFAMETHOXAZOLE + TRIMETHOPRIM) [Suspect]
     Indication: URINARY TRACT INFECTION
     Dosage: 960 MG TWICE DAILY ORAL
     Route: 048

REACTIONS (1)
  - ANOSMIA [None]
